FAERS Safety Report 11229500 (Version 2)
Quarter: 2015Q3

REPORT INFORMATION
  Report Type: Spontaneous
  Country: PL (occurrence: PL)
  Receive Date: 20150630
  Receipt Date: 20150709
  Transmission Date: 20151125
  Serious: Yes (Hospitalization, Other)
  Sender: FDA-Public Use
  Company Number: PHHY2015PL075298

PATIENT
  Age: 51 Year
  Sex: Male

DRUGS (4)
  1. CEFUROXIME. [Suspect]
     Active Substance: CEFUROXIME
     Indication: EAR PAIN
  2. CEFUROXIME. [Suspect]
     Active Substance: CEFUROXIME
     Indication: OTORRHOEA
  3. CEFUROXIME. [Suspect]
     Active Substance: CEFUROXIME
     Indication: VERTIGO
  4. CEFUROXIME. [Suspect]
     Active Substance: CEFUROXIME
     Indication: HEARING IMPAIRED

REACTIONS (2)
  - Condition aggravated [Recovered/Resolved]
  - Drug ineffective [Unknown]
